FAERS Safety Report 5082353-7 (Version None)
Quarter: 2006Q3

REPORT INFORMATION
  Report Type: 
  Country: None (occurrence: None)
  Receive Date: 20060814
  Receipt Date: 20060803
  Transmission Date: 20061208
  Serious: Yes (Disabling)
  Sender: FDA-Public Use
  Company Number: 227727

PATIENT
  Age: 64 Year
  Sex: Female

DRUGS (3)
  1. XOLAIR [Suspect]
     Indication: ASTHMA
     Dosage: 225, Q2W, SUBCUTANEOUS
     Route: 058
     Dates: start: 20050520, end: 20060601
  2. ALLEGRA [Concomitant]
  3. LESCOL [Concomitant]

REACTIONS (7)
  - ABASIA [None]
  - ACTIVITIES OF DAILY LIVING IMPAIRED [None]
  - ARTHRALGIA [None]
  - FATIGUE [None]
  - HYPOAESTHESIA [None]
  - JOINT SWELLING [None]
  - RED BLOOD CELL SEDIMENTATION RATE INCREASED [None]
